FAERS Safety Report 26144256 (Version 1)
Quarter: 2025Q4

REPORT INFORMATION
  Report Type: Spontaneous
  Country: US (occurrence: US)
  Receive Date: 20251211
  Receipt Date: 20251211
  Transmission Date: 20260118
  Serious: No
  Sender: ABBVIE
  Company Number: US-ABBVIE-6579746

PATIENT
  Sex: Female

DRUGS (2)
  1. LEXAPRO [Suspect]
     Active Substance: ESCITALOPRAM OXALATE
     Indication: Product used for unknown indication
     Route: 048
  2. SUNOSI [Suspect]
     Active Substance: SOLRIAMFETOL
     Indication: Product used for unknown indication
     Route: 065

REACTIONS (7)
  - Arthropathy [Unknown]
  - Urticaria [Unknown]
  - Heart rate abnormal [Unknown]
  - Blood pressure fluctuation [Unknown]
  - Therapeutic product effect decreased [Unknown]
  - Hypersomnia [Unknown]
  - Therapeutic product effect decreased [Unknown]
